FAERS Safety Report 7227068-1 (Version None)
Quarter: 2011Q1

REPORT INFORMATION
  Report Type: 
  Country: None (occurrence: None)
  Receive Date: 20110111
  Receipt Date: 20110111
  Transmission Date: 20110831
  Serious: Yes (Life-Threatening, Hospitalization, Other)
  Sender: FDA-Public Use
  Company Number: None

PATIENT
  Sex: Male
  Weight: 68.0396 kg

DRUGS (1)
  1. AGGRENOX [Suspect]
     Indication: TRANSIENT ISCHAEMIC ATTACK
     Dosage: 1 CAPSULE 2X DAY ORAL
     Route: 048
     Dates: start: 20070601, end: 20101101

REACTIONS (9)
  - DEHYDRATION [None]
  - MYASTHENIA GRAVIS [None]
  - DIZZINESS [None]
  - NECK PAIN [None]
  - DYSPNOEA [None]
  - ABDOMINAL PAIN UPPER [None]
  - NEOPLASM OF THYMUS [None]
  - HEPATIC NEOPLASM MALIGNANT [None]
  - LUNG NEOPLASM MALIGNANT [None]
